FAERS Safety Report 23705857 (Version 8)
Quarter: 2025Q1

REPORT INFORMATION
  Report Type: Report from Study
  Country: CA (occurrence: CA)
  Receive Date: 20240404
  Receipt Date: 20250109
  Transmission Date: 20250408
  Serious: Yes (Other)
  Sender: GLAXOSMITHKLINE
  Company Number: CA-GLAXOSMITHKLINE-CA2023AMR030931

PATIENT

DRUGS (15)
  1. MEPOLIZUMAB [Suspect]
     Active Substance: MEPOLIZUMAB
     Indication: Asthma
     Dosage: 100 MG, Q4W
     Route: 058
     Dates: start: 20200706
  2. MEPOLIZUMAB [Suspect]
     Active Substance: MEPOLIZUMAB
  3. MEPOLIZUMAB [Suspect]
     Active Substance: MEPOLIZUMAB
     Indication: Asthma
  4. MEPOLIZUMAB [Suspect]
     Active Substance: MEPOLIZUMAB
  5. MEPOLIZUMAB [Suspect]
     Active Substance: MEPOLIZUMAB
     Indication: Asthma
     Dosage: 100 MG, Q4W
     Route: 058
  6. MEPOLIZUMAB [Suspect]
     Active Substance: MEPOLIZUMAB
     Indication: Asthma
     Dosage: 100 MG, Q4W
  7. MEPOLIZUMAB [Suspect]
     Active Substance: MEPOLIZUMAB
     Indication: Asthma
     Dosage: 100 MG, Q4W
     Route: 058
  8. MEPOLIZUMAB [Suspect]
     Active Substance: MEPOLIZUMAB
     Indication: Asthma
     Dosage: 100 MG, Q4W
     Route: 058
  9. MEPOLIZUMAB [Suspect]
     Active Substance: MEPOLIZUMAB
     Indication: Asthma
     Dosage: 100 MG, Q4W
     Route: 058
  10. GLYCOPYRROLATE [Suspect]
     Active Substance: GLYCOPYRROLATE
     Indication: Product used for unknown indication
  11. COVID-19 VACCINE [Concomitant]
     Indication: Prophylaxis
  12. CIPROFLOXACIN [Concomitant]
     Active Substance: CIPROFLOXACIN
     Indication: Product used for unknown indication
     Dates: start: 20220418
  13. AMOXICILLIN\CLAVULANATE POTASSIUM [Concomitant]
     Active Substance: AMOXICILLIN\CLAVULANATE POTASSIUM
     Indication: Product used for unknown indication
  14. AMOXICILLIN\CLAVULANATE POTASSIUM [Concomitant]
     Active Substance: AMOXICILLIN\CLAVULANATE POTASSIUM
     Dosage: UNK, BID (875MG-125MG )
     Route: 048
  15. ALBUTEROL [Concomitant]
     Active Substance: ALBUTEROL
     Indication: Product used for unknown indication

REACTIONS (37)
  - Pneumonia [Recovering/Resolving]
  - Cough [Unknown]
  - Productive cough [Recovering/Resolving]
  - Weight decreased [Unknown]
  - Dizziness [Unknown]
  - Ophthalmic migraine [Unknown]
  - Eye pain [Unknown]
  - Fatigue [Unknown]
  - Restlessness [Not Recovered/Not Resolved]
  - Pollakiuria [Not Recovered/Not Resolved]
  - Yawning [Unknown]
  - Malaise [Unknown]
  - SARS-CoV-2 test positive [Unknown]
  - Sputum discoloured [Recovering/Resolving]
  - COVID-19 [Unknown]
  - Pain in extremity [Recovering/Resolving]
  - Paraesthesia [Unknown]
  - Sneezing [Unknown]
  - Rhinorrhoea [Unknown]
  - Dysphonia [Unknown]
  - Dyspnoea [Unknown]
  - Dyspnoea exertional [Unknown]
  - Chest pain [Unknown]
  - Wheezing [Unknown]
  - Lung hyperinflation [Unknown]
  - Chronic obstructive pulmonary disease [Unknown]
  - Nasal mucosal disorder [Unknown]
  - Nasal turbinate hypertrophy [Unknown]
  - Pharyngeal disorder [Unknown]
  - Hyperaemia [Unknown]
  - Spinal osteoarthritis [Unknown]
  - Asthma [Unknown]
  - Seasonal allergy [Not Recovered/Not Resolved]
  - Condition aggravated [Not Recovered/Not Resolved]
  - Breath sounds abnormal [Unknown]
  - Anxiety [Unknown]
  - Throat irritation [Unknown]

NARRATIVE: CASE EVENT DATE: 20230405
